FAERS Safety Report 6595110-7 (Version None)
Quarter: 2010Q1

REPORT INFORMATION
  Report Type: 
  Country: None (occurrence: None)
  Receive Date: 20100212
  Receipt Date: 20100129
  Transmission Date: 20100710
  Serious: Yes (Other)
  Sender: FDA-Public Use
  Company Number: 1000011670

PATIENT
  Sex: Female

DRUGS (3)
  1. DINOPROSTONE (DINOPROSTONE) (VAGINAL INSERT) [Suspect]
     Indication: LABOUR INDUCTION
     Dosage: (10 MG, ONCE)
  2. PREPIDIL (2 MILLIGRAM, GEL) [Suspect]
     Indication: LABOUR INDUCTION
     Dosage: MAX 4 MG/24 HRS
  3. MAGNESIUM SULFATE [Concomitant]

REACTIONS (2)
  - DRUG EXPOSURE DURING PREGNANCY [None]
  - PREMATURE SEPARATION OF PLACENTA [None]
